FAERS Safety Report 5959043-9 (Version None)
Quarter: 2008Q4

REPORT INFORMATION
  Report Type: 
  Country: None (occurrence: None)
  Receive Date: 20081120
  Receipt Date: 20081113
  Transmission Date: 20090506
  Serious: Yes (Other)
  Sender: FDA-Public Use
  Company Number: DE-JNJFOC-20081006513

PATIENT
  Sex: Male
  Weight: 80 kg

DRUGS (2)
  1. DURAGESIC-100 [Suspect]
     Indication: SUICIDE ATTEMPT
     Route: 062
  2. STILLNOX [Suspect]
     Indication: SUICIDE ATTEMPT
     Route: 048

REACTIONS (2)
  - SOMNOLENCE [None]
  - SUICIDE ATTEMPT [None]
